FAERS Safety Report 6553277-0 (Version None)
Quarter: 2010Q1

REPORT INFORMATION
  Report Type: 
  Country: None (occurrence: None)
  Receive Date: 20100127
  Receipt Date: 20090516
  Transmission Date: 20100710
  Serious: No
  Sender: FDA-Public Use
  Company Number: A0785661A

PATIENT
  Age: 56 Year
  Sex: Female

DRUGS (2)
  1. IMITREX [Suspect]
     Indication: MIGRAINE
     Route: 065
  2. TREXIMET [Suspect]
     Indication: MIGRAINE
     Route: 048

REACTIONS (1)
  - MEDICATION ERROR [None]
